FAERS Safety Report 14914900 (Version 1)
Quarter: 2018Q2

REPORT INFORMATION
  Report Type: Spontaneous
  Country: GB (occurrence: GB)
  Receive Date: 20180518
  Receipt Date: 20180518
  Transmission Date: 20180711
  Serious: Yes (Disabling)
  Sender: FDA-Public Use
  Company Number: GB-TEVA-2018-GB-894282

PATIENT
  Age: 8 Year
  Sex: Male
  Weight: 25.4 kg

DRUGS (1)
  1. SODIUM VALPROATE [Suspect]
     Active Substance: VALPROATE SODIUM
     Route: 065
     Dates: start: 20000102

REACTIONS (11)
  - Low set ears [Unknown]
  - Intestinal obstruction [Unknown]
  - Dysmorphism [Unknown]
  - Aggression [Unknown]
  - Autism spectrum disorder [Unknown]
  - Developmental delay [Unknown]
  - Sensory processing disorder [Unknown]
  - Intentional self-injury [Unknown]
  - Sleep disorder [Unknown]
  - Intellectual disability [Unknown]
  - Eye disorder [Unknown]

NARRATIVE: CASE EVENT DATE: 20110202
